FAERS Safety Report 6755649-8 (Version None)
Quarter: 2010Q2

REPORT INFORMATION
  Report Type: 
  Country: None (occurrence: None)
  Receive Date: 20100604
  Receipt Date: 20100514
  Transmission Date: 20101027
  Serious: Yes (Hospitalization, Other)
  Sender: FDA-Public Use
  Company Number: US-BAYER-201012020NA

PATIENT
  Age: 20 Year
  Sex: Female
  Weight: 91 kg

DRUGS (12)
  1. OCELLA [Suspect]
     Indication: DRUG USE FOR UNKNOWN INDICATION
     Route: 048
  2. YASMIN [Suspect]
     Indication: CONTRACEPTION
     Route: 048
     Dates: start: 20030501, end: 20031201
  3. FAMOTIDINE [Concomitant]
     Dosage: TOTAL DAILY DOSE: 40 MG  UNIT DOSE: 20 MG
     Route: 048
     Dates: start: 20030820
  4. PERCOCET [Concomitant]
     Dosage: 5MG/325MG
     Route: 065
     Dates: start: 20030816
  5. NAPROXEN SODIUM [Concomitant]
     Dosage: AS USED: 550 MG  UNIT DOSE: 550 MG
     Route: 048
     Dates: start: 20030526
  6. CEPHALEXIN [Concomitant]
     Dosage: TOTAL DAILY DOSE: 2000 MG  UNIT DOSE: 500 MG
     Route: 048
     Dates: start: 20030526
  7. FERROUS SO4 [Concomitant]
     Dosage: TOTAL DAILY DOSE: 650 MG  UNIT DOSE: 325 MG
     Route: 048
     Dates: start: 20030526
  8. DOC-Q-LAX [Concomitant]
     Route: 048
     Dates: start: 20030526
  9. ACETAMINOPHEN AND CODEINE PHOSPHATE #3 [Concomitant]
     Route: 048
     Dates: start: 20030711
  10. IBUPROFEN [Concomitant]
     Route: 065
     Dates: start: 20030604
  11. CEPHALEXIN [Concomitant]
     Route: 065
     Dates: start: 20030604
  12. CLOTRIMAZOLE [Concomitant]
     Dosage: 1 %
     Dates: start: 20030604

REACTIONS (7)
  - ABDOMINAL PAIN UPPER [None]
  - BILE DUCT STONE [None]
  - BILIARY DILATATION [None]
  - GALLBLADDER ENLARGEMENT [None]
  - MURPHY'S SIGN POSITIVE [None]
  - NAUSEA [None]
  - VOMITING [None]
